FAERS Safety Report 22324814 (Version 1)
Quarter: 2023Q2

REPORT INFORMATION
  Report Type: Spontaneous
  Country: US (occurrence: None)
  Receive Date: 20230513
  Receipt Date: 20230513
  Transmission Date: 20230722
  Serious: Yes (Disabling)
  Sender: FDA-Public Use
  Company Number: None

PATIENT
  Sex: 0

DRUGS (1)
  1. DOTAREM [Suspect]
     Active Substance: GADOTERATE MEGLUMINE
     Dates: start: 20230206, end: 20230206

REACTIONS (7)
  - Angina pectoris [None]
  - Contrast media reaction [None]
  - Blood cholesterol increased [None]
  - Blood triglycerides increased [None]
  - Eye irritation [None]
  - Muscle atrophy [None]
  - Skin texture abnormal [None]

NARRATIVE: CASE EVENT DATE: 20230206
